FAERS Safety Report 21561197 (Version 1)
Quarter: 2022Q4

REPORT INFORMATION
  Report Type: Spontaneous
  Country: AE (occurrence: AE)
  Receive Date: 20221107
  Receipt Date: 20221107
  Transmission Date: 20230112
  Serious: Yes (Disabling)
  Sender: FDA-Public Use
  Company Number: AE-CHIESI-2022CHF05720

PATIENT
  Age: 54 Year
  Sex: Male

DRUGS (3)
  1. FERRIPROX [Suspect]
     Active Substance: DEFERIPRONE
     Indication: Iron overload
     Dosage: 80 MILLIGRAM/KILOGRAM, TID
     Route: 048
     Dates: start: 20220815
  2. FERRIPROX [Suspect]
     Active Substance: DEFERIPRONE
     Indication: Transfusion
  3. FERRIPROX [Suspect]
     Active Substance: DEFERIPRONE
     Indication: Sickle cell disease

REACTIONS (2)
  - Vision blurred [Recovered/Resolved with Sequelae]
  - Optic nerve disorder [Recovered/Resolved with Sequelae]

NARRATIVE: CASE EVENT DATE: 20220915
